FAERS Safety Report 24715255 (Version 2)
Quarter: 2024Q4

REPORT INFORMATION
  Report Type: Spontaneous
  Country: US (occurrence: US)
  Receive Date: 20241210
  Receipt Date: 20241218
  Transmission Date: 20250114
  Serious: No
  Sender: ABBVIE
  Company Number: US-ABBVIE-6037685

PATIENT
  Age: 44 Year
  Sex: Female
  Weight: 79.832 kg

DRUGS (2)
  1. BOTOX [Suspect]
     Active Substance: ONABOTULINUMTOXINA
     Indication: Hyperhidrosis
     Dosage: TIME INTERVAL: AS NECESSARY: FREQUENCY- EVERY 4 MONTHS
     Route: 058
     Dates: start: 20230831, end: 20230831
  2. BOTOX [Suspect]
     Active Substance: ONABOTULINUMTOXINA
     Indication: Hyperhidrosis
     Dosage: TIME INTERVAL: AS NECESSARY: FREQUENCY- EVERY 4 MONTHS
     Route: 058
     Dates: start: 20241206, end: 20241206

REACTIONS (2)
  - Injection site pain [Recovered/Resolved]
  - Product quality issue [Not Recovered/Not Resolved]

NARRATIVE: CASE EVENT DATE: 20241206
